FAERS Safety Report 21123524 (Version 2)
Quarter: 2022Q3

REPORT INFORMATION
  Report Type: Spontaneous
  Country: FR (occurrence: FR)
  Receive Date: 20220724
  Receipt Date: 20220912
  Transmission Date: 20221027
  Serious: Yes (Other)
  Sender: FDA-Public Use
  Company Number: FR-AMGEN-FRASP2022124072

PATIENT
  Age: 42 Year
  Sex: Male
  Weight: 72.4 kg

DRUGS (2)
  1. OTEZLA [Suspect]
     Active Substance: APREMILAST
     Indication: Product used for unknown indication
     Dosage: 30 MILLIGRAM, BID
     Route: 065
     Dates: start: 20220405, end: 2022
  2. OTEZLA [Suspect]
     Active Substance: APREMILAST
     Dosage: UNK, QD
     Route: 065
     Dates: start: 2022

REACTIONS (3)
  - Transient ischaemic attack [Recovered/Resolved]
  - Reversible cerebral vasoconstriction syndrome [Unknown]
  - Migraine [Unknown]

NARRATIVE: CASE EVENT DATE: 20220101
